FAERS Safety Report 18036252 (Version 1)
Quarter: 2020Q3

REPORT INFORMATION
  Report Type: Spontaneous
  Country: US (occurrence: US)
  Receive Date: 20200716
  Receipt Date: 20200716
  Transmission Date: 20201103
  Serious: Yes (Hospitalization)
  Sender: FDA-Public Use
  Company Number: None

PATIENT
  Age: 76 Year
  Sex: Female

DRUGS (31)
  1. METRONIDAZOL [Concomitant]
     Active Substance: METRONIDAZOLE
  2. ONDANSETRON [Concomitant]
     Active Substance: ONDANSETRON
  3. BENZONATATE. [Concomitant]
     Active Substance: BENZONATATE
  4. DIGOXIN. [Concomitant]
     Active Substance: DIGOXIN
  5. FLORASTOR [Concomitant]
     Active Substance: SACCHAROMYCES CEREVISIAE
  6. LOSARTAN POT [Concomitant]
     Active Substance: LOSARTAN POTASSIUM
  7. LUMIGAN [Concomitant]
     Active Substance: BIMATOPROST
  8. URSODIOL. [Concomitant]
     Active Substance: URSODIOL
  9. AZEL/FLUTIC [Concomitant]
  10. BUMETANIDE. [Concomitant]
     Active Substance: BUMETANIDE
  11. FLUCONAZOLE. [Concomitant]
     Active Substance: FLUCONAZOLE
  12. FOLBEE [Concomitant]
     Active Substance: CYANOCOBALAMIN\FOLIC ACID\PYRIDOXINE HYDROCHLORIDE
  13. OMEPRAZOLE. [Concomitant]
     Active Substance: OMEPRAZOLE
  14. TRIAMCINOLON CRE [Concomitant]
  15. DOXYCYCL HYC [Concomitant]
  16. JANUMET XR [Concomitant]
     Active Substance: METFORMIN HYDROCHLORIDE\SITAGLIPTIN PHOSPHATE
  17. METOPROL TAR [Concomitant]
  18. POT CHLORIDE [Concomitant]
     Active Substance: POTASSIUM CHLORIDE
  19. POT CL MICRO [Concomitant]
  20. ROPINIROLE. [Concomitant]
     Active Substance: ROPINIROLE
  21. ESBRIET [Suspect]
     Active Substance: PIRFENIDONE
     Indication: IDIOPATHIC PULMONARY FIBROSIS
     Route: 048
     Dates: start: 20181006
  22. AZELAIC ACID. [Concomitant]
     Active Substance: AZELAIC ACID
  23. KLOR CON 10 [Concomitant]
  24. MAG OXIDE [Concomitant]
     Active Substance: MAGNESIUM OXIDE
  25. ELOIQUIS [Concomitant]
  26. ROSUVASTATIN. [Concomitant]
     Active Substance: ROSUVASTATIN
  27. BUSPRIRONE [Concomitant]
  28. CYANOCOBALAM [Concomitant]
     Active Substance: CYANOCOBALAMIN
  29. CYCLOBENZAPR [Concomitant]
     Active Substance: CYCLOBENZAPRINE
  30. DILTIAZEM ER [Concomitant]
     Active Substance: DILTIAZEM
  31. INTROGLYCRN [Concomitant]

REACTIONS (2)
  - Therapy interrupted [None]
  - Blood magnesium decreased [None]

NARRATIVE: CASE EVENT DATE: 20200620
